FAERS Safety Report 6877927-4 (Version None)
Quarter: 2010Q3

REPORT INFORMATION
  Report Type: 
  Country: None (occurrence: None)
  Receive Date: 20100727
  Receipt Date: 20100722
  Transmission Date: 20110219
  Serious: Yes (Death)
  Sender: FDA-Public Use
  Company Number: US-MERCK-1006USA03573

PATIENT
  Age: 52 Year
  Sex: Female

DRUGS (1)
  1. IVEMEND [Suspect]
     Indication: PROPHYLAXIS OF NAUSEA AND VOMITING
     Route: 042
     Dates: start: 20091124, end: 20091124

REACTIONS (3)
  - ADVERSE DRUG REACTION [None]
  - HAEMORRHAGE [None]
  - LUNG NEOPLASM MALIGNANT [None]
